FAERS Safety Report 6074482-6 (Version None)
Quarter: 2009Q1

REPORT INFORMATION
  Report Type: 
  Country: None (occurrence: None)
  Receive Date: 20090206
  Receipt Date: 20090127
  Transmission Date: 20090719
  Serious: Yes (Death, Hospitalization)
  Sender: FDA-Public Use
  Company Number: 2007-04178

PATIENT
  Age: 62 Year
  Sex: Male
  Weight: 83 kg

DRUGS (6)
  1. VELCADE [Suspect]
     Indication: MULTIPLE MYELOMA
     Dosage: 2 MG, INTRAVENOUS; 1.6 MG, INTRAVENOUS; 1.8 MG, INTRAVENOUS; 2.6 MG, INTRAVENOUS
     Route: 042
     Dates: start: 20071206, end: 20071206
  2. VELCADE [Suspect]
     Indication: MULTIPLE MYELOMA
     Dosage: 2 MG, INTRAVENOUS; 1.6 MG, INTRAVENOUS; 1.8 MG, INTRAVENOUS; 2.6 MG, INTRAVENOUS
     Route: 042
     Dates: start: 20071217, end: 20071220
  3. VELCADE [Suspect]
     Indication: MULTIPLE MYELOMA
     Dosage: 2 MG, INTRAVENOUS; 1.6 MG, INTRAVENOUS; 1.8 MG, INTRAVENOUS; 2.6 MG, INTRAVENOUS
     Route: 042
     Dates: start: 20071224, end: 20071224
  4. VELCADE [Suspect]
     Indication: MULTIPLE MYELOMA
     Dosage: 2 MG, INTRAVENOUS; 1.6 MG, INTRAVENOUS; 1.8 MG, INTRAVENOUS; 2.6 MG, INTRAVENOUS
     Route: 042
     Dates: start: 20071227, end: 20071227
  5. VELCADE [Suspect]
     Indication: MULTIPLE MYELOMA
     Dosage: 2 MG, INTRAVENOUS; 1.6 MG, INTRAVENOUS; 1.8 MG, INTRAVENOUS; 2.6 MG, INTRAVENOUS
     Route: 042
     Dates: start: 20080307, end: 20080317
  6. ORGADRONE (DEXAMETHASONE SODIUM PHOSPHATE) [Concomitant]

REACTIONS (13)
  - ANURIA [None]
  - BENIGN PROSTATIC HYPERPLASIA [None]
  - BLADDER DILATATION [None]
  - BLOOD LACTATE DEHYDROGENASE INCREASED [None]
  - CARDIAC FAILURE [None]
  - CARDIOMEGALY [None]
  - DISEASE PROGRESSION [None]
  - PNEUMONIA [None]
  - PYREXIA [None]
  - RESPIRATORY TRACT HAEMORRHAGE [None]
  - RESTLESSNESS [None]
  - SECONDARY IMMUNODEFICIENCY [None]
  - URINARY RETENTION [None]
